FAERS Safety Report 9180070 (Version 1)
Quarter: 2012Q4

REPORT INFORMATION
  Report Type: 
  Country: US (occurrence: US)
  Receive Date: 20121029
  Receipt Date: 20121029
  Transmission Date: 20130627
  Serious: Yes (Other)
  Sender: FDA-Public Use
  Company Number: US-TEVA-366841USA

PATIENT
  Sex: Female
  Weight: 81.72 kg

DRUGS (2)
  1. COPAXONE [Suspect]
     Indication: MULTIPLE SCLEROSIS
     Dosage: 20 Milligram Daily;
     Route: 058
     Dates: start: 20040916
  2. LOTREL [Concomitant]
     Indication: HYPERTENSION
     Dosage: 10 mg/20 mg
     Route: 048

REACTIONS (1)
  - Breast cancer [Not Recovered/Not Resolved]
